FAERS Safety Report 19702637 (Version 6)
Quarter: 2021Q4

REPORT INFORMATION
  Report Type: Report from Study
  Country: None (occurrence: ES)
  Receive Date: 20210815
  Receipt Date: 20211003
  Transmission Date: 20220303
  Serious: Yes (Hospitalization)
  Sender: FDA-Public Use
  Company Number: ES-ABBVIE-21K-144-4031781-00

PATIENT
  Age: 72 Year
  Sex: Male
  Weight: 66 kg

DRUGS (2)
  1. CARBIDOPA\LEVODOPA [Suspect]
     Active Substance: CARBIDOPA\LEVODOPA
     Indication: Parkinson^s disease
     Route: 050
     Dates: start: 20180221
  2. CARBIDOPA\LEVODOPA [Suspect]
     Active Substance: CARBIDOPA\LEVODOPA

REACTIONS (12)
  - SARS-CoV-2 test positive [Recovered/Resolved]
  - Pneumonia aspiration [Recovered/Resolved]
  - Oxygen saturation decreased [Not Recovered/Not Resolved]
  - Mobility decreased [Not Recovered/Not Resolved]
  - Secretion discharge [Recovered/Resolved]
  - Mobility decreased [Unknown]
  - Respiratory disorder [Unknown]
  - Hypotension [Recovered/Resolved]
  - Depressed mood [Unknown]
  - Pyrexia [Recovered/Resolved]
  - Device dislocation [Recovered/Resolved]
  - Parkinson^s disease [Unknown]

NARRATIVE: CASE EVENT DATE: 20210801
